FAERS Safety Report 6335487-0 (Version None)
Quarter: 2009Q3

REPORT INFORMATION
  Report Type: 
  Country: None (occurrence: None)
  Receive Date: 20090831
  Receipt Date: 20090821
  Transmission Date: 20100115
  Serious: Yes (Hospitalization)
  Sender: FDA-Public Use
  Company Number: PHHO2009US07033

PATIENT
  Sex: Male
  Weight: 84.807 kg

DRUGS (9)
  1. RAD 666 RAD+TAB+CMAS [Suspect]
     Indication: RENAL CELL CARCINOMA
     Dosage: UNKNOWN
     Route: 048
     Dates: start: 20070417, end: 20090528
  2. RAD 666 RAD+TAB+CMAS [Suspect]
     Dosage: UNK
     Route: 048
     Dates: end: 20090602
  3. RAD 666 RAD+TAB+CMAS [Suspect]
     Dosage: UNK
     Route: 048
     Dates: start: 20090612
  4. BEVACIZUMAB [Suspect]
     Indication: RENAL CELL CARCINOMA
     Dosage: UNK
     Dates: start: 20070417, end: 20090528
  5. PERIACTIN [Concomitant]
  6. FLOMAX [Concomitant]
  7. SIMVASTATIN [Concomitant]
  8. ATENOLOL [Concomitant]
  9. LASIX [Concomitant]

REACTIONS (8)
  - ANAEMIA [None]
  - BLOOD GLUCOSE INCREASED [None]
  - HEMIPARESIS [None]
  - HYPOAESTHESIA [None]
  - PARAESTHESIA [None]
  - RADICULOPATHY [None]
  - RENAL FAILURE [None]
  - THROMBOCYTOPENIA [None]
